FAERS Safety Report 16464560 (Version 1)
Quarter: 2019Q2

REPORT INFORMATION
  Report Type: Report from Study
  Country: GB (occurrence: GB)
  Receive Date: 20190621
  Receipt Date: 20190621
  Transmission Date: 20190711
  Serious: Yes (Other)
  Sender: FDA-Public Use
  Company Number: GB-MYLANLABS-2019M1057764

PATIENT
  Sex: Male

DRUGS (1)
  1. BRABIO 20 MG/ML, SOLUTION FOR INJECTION, PRE-FILLED SYRINGE [Suspect]
     Active Substance: GLATIRAMER ACETATE
     Indication: MULTIPLE SCLEROSIS
     Dosage: 20 MILLIGRAM, QD
     Route: 058
     Dates: start: 20190307, end: 201906

REACTIONS (4)
  - Muscle spasms [Unknown]
  - Visual impairment [Unknown]
  - Palpitations [Unknown]
  - Condition aggravated [Unknown]

NARRATIVE: CASE EVENT DATE: 2019
